FAERS Safety Report 20877640 (Version 1)
Quarter: 2022Q2

REPORT INFORMATION
  Report Type: Spontaneous
  Country: US (occurrence: US)
  Receive Date: 20220526
  Receipt Date: 20220526
  Transmission Date: 20220721
  Serious: Yes (Hospitalization, Other)
  Sender: FDA-Public Use
  Company Number: US-AMGEN-USASP2022088803

PATIENT
  Age: 25 Year
  Sex: Female

DRUGS (9)
  1. RITUXIMAB [Suspect]
     Active Substance: RITUXIMAB
     Indication: Immune thrombocytopenia
     Dosage: 100 MILLIGRAM/METER SQUARE X 3 DOSES
     Route: 065
     Dates: start: 2021
  2. RITUXIMAB [Suspect]
     Active Substance: RITUXIMAB
     Indication: Evans syndrome
     Dosage: 375 MILLIGRAM/METER SQUARE X 2 DOSES
     Route: 065
     Dates: end: 2021
  3. ROMIPLOSTIM [Suspect]
     Active Substance: ROMIPLOSTIM
     Indication: Immune thrombocytopenia
     Dosage: 10 MICROGRAM/KILOGRAMS
     Route: 065
     Dates: start: 2021, end: 2021
  4. ROMIPLOSTIM [Suspect]
     Active Substance: ROMIPLOSTIM
     Indication: Mucosal haemorrhage
  5. PREDNISONE [Concomitant]
     Active Substance: PREDNISONE
     Indication: Immune thrombocytopenia
     Route: 065
  6. PREDNISONE [Concomitant]
     Active Substance: PREDNISONE
     Indication: Mucosal haemorrhage
  7. OBINUTUZUMAB [Concomitant]
     Active Substance: OBINUTUZUMAB
     Indication: Acute respiratory distress syndrome
     Dosage: 1000 MILLIGRAM/METERS SQUARE
     Route: 065
  8. MYCOPHENOLATE MOFETIL [Concomitant]
     Active Substance: MYCOPHENOLATE MOFETIL
     Route: 065
  9. SIROLIMUS [Concomitant]
     Active Substance: SIROLIMUS
     Route: 065

REACTIONS (12)
  - Immune thrombocytopenia [Recovered/Resolved]
  - Piriformis syndrome [Recovering/Resolving]
  - Haemorrhage intracranial [Unknown]
  - Diplopia [Unknown]
  - Serum sickness [Unknown]
  - Acute respiratory failure [Recovering/Resolving]
  - Drug specific antibody present [Unknown]
  - Bronchospasm [Unknown]
  - Drug ineffective for unapproved indication [Unknown]
  - Drug ineffective [Unknown]
  - Off label use [Unknown]
  - Feeling jittery [Recovering/Resolving]
